FAERS Safety Report 8570705-X (Version None)
Quarter: 2012Q3

REPORT INFORMATION
  Report Type: 
  Country: None (occurrence: None)
  Receive Date: 20120805
  Receipt Date: 20120625
  Transmission Date: 20120928
  Serious: No
  Sender: FDA-Public Use
  Company Number: US-009507513-2012SP036130

PATIENT

DRUGS (6)
  1. LOTREL [Concomitant]
     Indication: BLOOD PRESSURE
     Dosage: 5/40MG, UNKNOWN
  2. CRESTOR [Concomitant]
     Indication: HYPERCHOLESTEROLAEMIA
     Dosage: 20 MG, UNKNOWN
  3. MULTI-VITAMINS [Concomitant]
     Indication: PRODUCT USED FOR UNKNOWN INDICATION
     Dosage: UNK, UNKNOWN
  4. CLARITIN [Suspect]
     Indication: EYE PRURITUS
  5. CLARITIN [Suspect]
     Indication: RHINORRHOEA
  6. CLARITIN [Suspect]
     Indication: SNEEZING
     Dosage: 10 MG, QAM
     Route: 048
     Dates: start: 20120503, end: 20120620

REACTIONS (1)
  - DRUG INEFFECTIVE [None]
